FAERS Safety Report 6334182-1 (Version None)
Quarter: 2009Q3

REPORT INFORMATION
  Report Type: 
  Country: None (occurrence: None)
  Receive Date: 20090829
  Receipt Date: 20090717
  Transmission Date: 20100115
  Serious: No
  Sender: FDA-Public Use
  Company Number: US-ABBOTT-09P-163-0586031-00

PATIENT
  Sex: Female
  Weight: 67.192 kg

DRUGS (1)
  1. SIMCOR [Suspect]
     Indication: BLOOD TRIGLYCERIDES INCREASED
     Dosage: 500/20MG
     Dates: start: 20090701

REACTIONS (2)
  - FLUSHING [None]
  - MUSCULOSKELETAL STIFFNESS [None]
